FAERS Safety Report 17858333 (Version 2)
Quarter: 2020Q2

REPORT INFORMATION
  Report Type: Report from Study
  Country: None (occurrence: US)
  Receive Date: 20200604
  Receipt Date: 20200605
  Transmission Date: 20200714
  Serious: Yes (Hospitalization)
  Sender: FDA-Public Use
  Company Number: US-US WORLDMEDS, LLC-USW201906-001182

PATIENT
  Age: 81 Year
  Sex: Female

DRUGS (14)
  1. APOKYN [Suspect]
     Active Substance: APOMORPHINE HYDROCHLORIDE
     Route: 058
     Dates: start: 20190121
  2. DIVICAN [Concomitant]
  3. GABAPENTIN. [Concomitant]
     Active Substance: GABAPENTIN
  4. SYNTHROID [Concomitant]
     Active Substance: LEVOTHYROXINE SODIUM
  5. APOKYN [Suspect]
     Active Substance: APOMORPHINE HYDROCHLORIDE
     Indication: PARKINSON^S DISEASE
     Dosage: 3 ML CARTRIDGE 1 EA CART, INJECT UP TO 0.2 ML/DOSE UNDER THE SKIN
     Route: 058
  6. SEROQUEL [Concomitant]
     Active Substance: QUETIAPINE FUMARATE
  7. RYTARY [Concomitant]
     Active Substance: CARBIDOPA\LEVODOPA
  8. VITAMIN D3 [Concomitant]
     Active Substance: CHOLECALCIFEROL
  9. CRESTOR [Concomitant]
     Active Substance: ROSUVASTATIN CALCIUM
  10. NUPLAZID [Concomitant]
     Active Substance: PIMAVANSERIN TARTRATE
  11. POTASSIUM [Concomitant]
     Active Substance: POTASSIUM
  12. FUROSEMIDE. [Concomitant]
     Active Substance: FUROSEMIDE
  13. PROPRANOLOL HCL [Concomitant]
     Active Substance: PROPRANOLOL HYDROCHLORIDE
  14. LEVOTHYROXINE SODIUM. [Concomitant]
     Active Substance: LEVOTHYROXINE SODIUM

REACTIONS (7)
  - Fall [Recovering/Resolving]
  - Mouth breathing [Recovering/Resolving]
  - Arthralgia [Unknown]
  - Pneumonia [Recovering/Resolving]
  - Swollen tongue [Recovered/Resolved]
  - Therapeutic product effect incomplete [Unknown]
  - Pollakiuria [Unknown]

NARRATIVE: CASE EVENT DATE: 201906
